FAERS Safety Report 15599110 (Version 1)
Quarter: 2018Q4

REPORT INFORMATION
  Report Type: Spontaneous
  Country: US (occurrence: US)
  Receive Date: 20181108
  Receipt Date: 20181108
  Transmission Date: 20190205
  Serious: Yes (Disabling)
  Sender: FDA-Public Use
  Company Number: None

PATIENT
  Age: 74 Year
  Sex: Male
  Weight: 90.72 kg

DRUGS (4)
  1. LOSARTAN 25 MG [Concomitant]
     Active Substance: LOSARTAN
  2. WELLBUTRIN SR 200MG [Concomitant]
  3. ATORVASTATIN 10MG [Suspect]
     Active Substance: ATORVASTATIN
     Indication: HYPERLIPIDAEMIA
     Dosage: ?          OTHER FREQUENCY:ONE DAILY;?
     Route: 048
     Dates: start: 20170918, end: 20180501
  4. LEVOTHYROX 150 UCG [Concomitant]

REACTIONS (5)
  - Musculoskeletal stiffness [None]
  - Muscle contractions involuntary [None]
  - Tenderness [None]
  - Myalgia [None]
  - Asthenia [None]

NARRATIVE: CASE EVENT DATE: 201802
